FAERS Safety Report 5145902-6 (Version None)
Quarter: 2006Q4

REPORT INFORMATION
  Report Type: 
  Country: None (occurrence: None)
  Receive Date: 20061108
  Receipt Date: 20061026
  Transmission Date: 20070319
  Serious: Yes (Hospitalization)
  Sender: FDA-Public Use
  Company Number: FRWYE340326OCT06

PATIENT
  Age: 27 Year
  Sex: Female

DRUGS (4)
  1. ENBREL [Suspect]
     Indication: RHEUMATOID ARTHRITIS
     Dosage: 50 MG TOTAL WEEKLY
     Route: 058
     Dates: start: 20060601, end: 20060801
  2. CORTANCYL [Suspect]
     Indication: RHEUMATOID ARTHRITIS
     Route: 048
     Dates: end: 20060801
  3. CORTANCYL [Suspect]
     Route: 048
     Dates: start: 20060801
  4. METHOTREXATE [Suspect]
     Indication: RHEUMATOID ARTHRITIS
     Dosage: 15 MG TOTAL WEEKLY
     Route: 048
     Dates: start: 20051201, end: 20060530

REACTIONS (8)
  - EOSINOPHILIA [None]
  - LOWER RESPIRATORY TRACT INFLAMMATION [None]
  - LUNG INFILTRATION [None]
  - MICROCYTIC ANAEMIA [None]
  - OBSTRUCTIVE AIRWAYS DISORDER [None]
  - PRODUCTIVE COUGH [None]
  - RESTRICTIVE PULMONARY DISEASE [None]
  - SPUTUM PURULENT [None]
